FAERS Safety Report 7548925-2 (Version None)
Quarter: 2011Q2

REPORT INFORMATION
  Report Type: 
  Country: None (occurrence: None)
  Receive Date: 20110615
  Receipt Date: 20110601
  Transmission Date: 20111010
  Serious: Yes (Hospitalization, Other)
  Sender: FDA-Public Use
  Company Number: US-CELGENEUS-163-21660-11060550

PATIENT

DRUGS (5)
  1. DOXORUBICIN HCL [Suspect]
     Indication: BREAST CANCER
     Dosage: 60 MILLIGRAM/SQ. METER
     Route: 051
  2. BEVACIZUMAB [Suspect]
     Indication: BREAST CANCER
     Dosage: 10 MILLIGRAM/SQ. METER
     Route: 051
  3. ABRAXANE [Suspect]
     Indication: BREAST CANCER
     Dosage: 260 MILLIGRAM/SQ. METER
     Route: 051
  4. CYCLOPHOSPHAMIDE [Suspect]
     Indication: BREAST CANCER
     Dosage: 600 MILLIGRAM/SQ. METER
     Route: 051
  5. PEGFILGRASTIM [Concomitant]
     Dosage: 6 MILLIGRAM
     Route: 058

REACTIONS (11)
  - MUCOSAL INFLAMMATION [None]
  - COUGH [None]
  - FATIGUE [None]
  - NAUSEA [None]
  - PERIPHERAL SENSORY NEUROPATHY [None]
  - DISEASE PROGRESSION [None]
  - BILIARY COLIC [None]
  - EPISTAXIS [None]
  - PNEUMONITIS [None]
  - PROTEINURIA [None]
  - ATRIAL FIBRILLATION [None]
